FAERS Safety Report 7346278-6 (Version None)
Quarter: 2011Q1

REPORT INFORMATION
  Report Type: 
  Country: None (occurrence: None)
  Receive Date: 20110311
  Receipt Date: 20110307
  Transmission Date: 20110831
  Serious: Yes (Other)
  Sender: FDA-Public Use
  Company Number: US-PFIZER INC-2011033743

PATIENT
  Sex: Female

DRUGS (1)
  1. ZMAX [Suspect]
     Indication: UPPER RESPIRATORY TRACT INFECTION
     Dosage: 2 MG, 1X/DAY
     Route: 048
     Dates: start: 20110128, end: 20110128

REACTIONS (3)
  - TACHYCARDIA [None]
  - CONVULSION [None]
  - SYNCOPE [None]
